FAERS Safety Report 9606731 (Version 1)
Quarter: 2013Q4

REPORT INFORMATION
  Report Type: Spontaneous
  Country: US (occurrence: US)
  Receive Date: 20131008
  Receipt Date: 20131008
  Transmission Date: 20140711
  Serious: No
  Sender: FDA-Public Use
  Company Number: US-AMGEN-USASP2013066026

PATIENT
  Age: 80 Year
  Sex: Female

DRUGS (5)
  1. PROLIA [Suspect]
     Indication: OSTEOPOROSIS POSTMENOPAUSAL
     Dosage: UNK
     Route: 065
     Dates: start: 20130819
  2. CALCIUM [Concomitant]
     Dosage: 2UNK, QD
  3. MAGNESIUM [Concomitant]
     Dosage: UNK UNK, Q3WK
  4. SYNTHROID [Concomitant]
     Dosage: 88 MUG, QD
  5. PREMARIN [Concomitant]
     Dosage: 0.45 UNK, UNK

REACTIONS (2)
  - Superficial vein prominence [Unknown]
  - Skin discolouration [Unknown]
